FAERS Safety Report 5494514-3 (Version None)
Quarter: 2007Q4

REPORT INFORMATION
  Report Type: 
  Country: None (occurrence: None)
  Receive Date: 20071024
  Receipt Date: 20071011
  Transmission Date: 20080405
  Serious: Yes (Other)
  Sender: FDA-Public Use
  Company Number: ES-AMGEN-US232091

PATIENT
  Age: 68 Year
  Sex: Female

DRUGS (5)
  1. ENBREL [Suspect]
     Indication: PSORIATIC ARTHROPATHY
     Route: 058
     Dates: start: 20070620, end: 20070704
  2. VITAMIN D [Concomitant]
     Dosage: UNKNOWN
     Route: 065
  3. CALCIUM [Concomitant]
     Dosage: UNKNOWN
     Route: 065
  4. ENANTYUM [Concomitant]
     Dosage: UNKNOWN
     Route: 065
     Dates: start: 20060101
  5. RISEDRONATE SODIUM [Concomitant]
     Route: 065

REACTIONS (1)
  - HYPERTENSIVE CRISIS [None]
